FAERS Safety Report 10053489 (Version 1)
Quarter: 2014Q2

REPORT INFORMATION
  Report Type: Spontaneous
  Country: US (occurrence: US)
  Receive Date: 20140402
  Receipt Date: 20140402
  Transmission Date: 20141212
  Serious: Yes (Hospitalization)
  Sender: FDA-Public Use
  Company Number: US-ACTAVIS-2014-06104

PATIENT
  Age: 73 Year
  Sex: Female
  Weight: 58 kg

DRUGS (3)
  1. LETROZOLE (ATLLC) [Suspect]
     Indication: BREAST CANCER
     Dosage: 2.5 MG, DAILY
     Route: 048
     Dates: start: 20131015
  2. METHADONE [Concomitant]
     Indication: NEURALGIA
     Dosage: UNK
     Route: 065
     Dates: start: 20131017, end: 20131017
  3. MYCELEX [Concomitant]
     Indication: CANDIDA INFECTION
     Dosage: UNK
     Route: 065
     Dates: start: 20131015

REACTIONS (1)
  - Febrile neutropenia [Recovered/Resolved]
